FAERS Safety Report 16802578 (Version 2)
Quarter: 2019Q4

REPORT INFORMATION
  Report Type: Report from Study
  Country: US (occurrence: US)
  Receive Date: 20190912
  Receipt Date: 20191125
  Transmission Date: 20200122
  Serious: Yes (Other)
  Sender: FDA-Public Use
  Company Number: US-ROCHE-2399380

PATIENT
  Sex: Male

DRUGS (6)
  1. AVASTIN [Suspect]
     Active Substance: BEVACIZUMAB
     Indication: COLON CANCER
     Dosage: DAY 1 AND DAY 15 EVERY 28 DAYS
     Route: 065
  2. TECENTRIQ [Suspect]
     Active Substance: ATEZOLIZUMAB
     Indication: HYPOTHYROIDISM
  3. COTELLIC [Suspect]
     Active Substance: COBIMETINIB
     Indication: COLON CANCER
     Dosage: TAKE 2 TABLET(S) BY MOUTH EVERY DAY ON DAYS 1 TO 21
     Route: 048
  4. COTELLIC [Suspect]
     Active Substance: COBIMETINIB
     Indication: HYPOTHYROIDISM
  5. TECENTRIQ [Suspect]
     Active Substance: ATEZOLIZUMAB
     Indication: COLON CANCER
     Dosage: DAY 1 AND DAY 15 EVERY 28 DAYS
     Route: 042
  6. AVASTIN [Suspect]
     Active Substance: BEVACIZUMAB
     Indication: HYPOTHYROIDISM

REACTIONS (4)
  - Mouth swelling [Unknown]
  - Eye infection [Unknown]
  - Intentional product use issue [Unknown]
  - Off label use [Unknown]
